FAERS Safety Report 13322413 (Version 2)
Quarter: 2017Q1

REPORT INFORMATION
  Report Type: Spontaneous
  Country: CH (occurrence: CH)
  Receive Date: 20170310
  Receipt Date: 20170313
  Transmission Date: 20170428
  Serious: Yes (Death, Life-Threatening, Other)
  Sender: FDA-Public Use
  Company Number: CH-ASTRAZENECA-2017SE25457

PATIENT
  Age: 45 Year
  Sex: Female

DRUGS (15)
  1. TRUXAL [Suspect]
     Active Substance: CHLORPROTHIXENE
     Route: 048
  2. SEROQUEL [Suspect]
     Active Substance: QUETIAPINE FUMARATE
     Route: 048
     Dates: start: 20160420
  3. SEROQUEL [Suspect]
     Active Substance: QUETIAPINE FUMARATE
     Route: 048
     Dates: start: 20160421
  4. AURORIX [Suspect]
     Active Substance: MOCLOBEMIDE
     Route: 048
     Dates: start: 20160425
  5. AURORIX [Suspect]
     Active Substance: MOCLOBEMIDE
     Route: 048
     Dates: start: 20160501
  6. SEROQUEL [Suspect]
     Active Substance: QUETIAPINE FUMARATE
     Route: 048
     Dates: start: 20160419
  7. SEROQUEL [Suspect]
     Active Substance: QUETIAPINE FUMARATE
     Route: 048
     Dates: start: 20160422, end: 20160424
  8. LITHIUM SULFATE [Suspect]
     Active Substance: LITHIUM SULFATE
     Route: 048
     Dates: start: 20160412
  9. VALDOXAN [Suspect]
     Active Substance: AGOMELATINE
     Route: 048
  10. AURORIX [Suspect]
     Active Substance: MOCLOBEMIDE
     Dosage: 150-300 MG/DAY
     Route: 048
     Dates: start: 20160418
  11. AURORIX [Suspect]
     Active Substance: MOCLOBEMIDE
     Route: 048
     Dates: start: 20160429
  12. LITHIUM SULFATE [Suspect]
     Active Substance: LITHIUM SULFATE
     Route: 048
     Dates: start: 20160425
  13. MAGNESIOCARD [Concomitant]
     Active Substance: MAGNESIUM ASPARTATE HYDROCHLORIDE
     Indication: HYPERTENSION
  14. VENLAFAXINE [Suspect]
     Active Substance: VENLAFAXINE HYDROCHLORIDE
     Route: 065
  15. TRUXAL [Suspect]
     Active Substance: CHLORPROTHIXENE
     Route: 048
     Dates: start: 20160430

REACTIONS (6)
  - Toxicity to various agents [Fatal]
  - Tremor [Unknown]
  - Suicidal ideation [Unknown]
  - Anxiety [Fatal]
  - Completed suicide [Fatal]
  - Depression [Unknown]

NARRATIVE: CASE EVENT DATE: 20160501
